FAERS Safety Report 20543127 (Version 1)
Quarter: 2022Q1

REPORT INFORMATION
  Report Type: Spontaneous
  Country: US (occurrence: None)
  Receive Date: 20220302
  Receipt Date: 20220302
  Transmission Date: 20220423
  Serious: No
  Sender: FDA-Public Use
  Company Number: US-ROCHE-2790991

PATIENT
  Sex: Male

DRUGS (1)
  1. NUTROPIN AQ [Suspect]
     Active Substance: SOMATROPIN
     Indication: Blood growth hormone abnormal
     Route: 058
     Dates: start: 1994, end: 2010

REACTIONS (2)
  - Rash macular [Recovered/Resolved]
  - Migraine [Recovered/Resolved]
